FAERS Safety Report 18021516 (Version 16)
Quarter: 2020Q4

REPORT INFORMATION
  Report Type: Spontaneous
  Country: CA (occurrence: CA)
  Receive Date: 20200715
  Receipt Date: 20201226
  Transmission Date: 20210113
  Serious: Yes (Hospitalization, Other)
  Sender: FDA-Public Use
  Company Number: CA-CELLTRION INC.-2020CA023251

PATIENT

DRUGS (15)
  1. INFLECTRA [Suspect]
     Active Substance: INFLIXIMAB-DYYB
     Dosage: 5 MG/KG, 0, 2, 6 WEEKS, THEN EVERY 8 WEEKS
     Route: 042
     Dates: start: 20200520
  2. BENADRYL [Concomitant]
     Active Substance: DIPHENHYDRAMINE HYDROCHLORIDE
     Indication: PREMEDICATION
     Dosage: UNK
     Route: 042
     Dates: start: 20201203, end: 20201203
  3. ENTOCORT [Concomitant]
     Active Substance: BUDESONIDE
     Dosage: UNK
     Route: 065
     Dates: start: 20200307
  4. INFLECTRA [Suspect]
     Active Substance: INFLIXIMAB-DYYB
     Dosage: 5 MG/KG, 0, 2, 6 WEEKS, THEN EVERY 8 WEEKS
     Route: 042
     Dates: start: 20200714
  5. PANTOLOC [PANTOPRAZOLE] [Concomitant]
     Active Substance: PANTOPRAZOLE SODIUM
     Dosage: UNK
     Route: 065
     Dates: start: 2020
  6. INFLECTRA [Suspect]
     Active Substance: INFLIXIMAB-DYYB
     Dosage: 5 MG/KG WEEKS 0, 2, 6, THEN EVERY 8 WEEKS
     Route: 042
     Dates: start: 20201104, end: 20201104
  7. INFLECTRA [Suspect]
     Active Substance: INFLIXIMAB-DYYB
     Indication: CROHN^S DISEASE
     Dosage: 5 MG/KG, 0, 2, 6 WEEKS, THEN EVERY 8 WEEKS
     Route: 042
     Dates: start: 20200409, end: 20201203
  8. INFLECTRA [Suspect]
     Active Substance: INFLIXIMAB-DYYB
     Dosage: 5 MG/KG, 0, 2, 6 WEEKS, THEN EVERY 8 WEEKS
     Route: 042
     Dates: start: 20200714
  9. INFLECTRA [Suspect]
     Active Substance: INFLIXIMAB-DYYB
     Dosage: 5 MG/KG, 0, 2, 6 WEEKS, THEN EVERY 8 WEEKS
     Route: 042
     Dates: start: 20200916
  10. INFLECTRA [Suspect]
     Active Substance: INFLIXIMAB-DYYB
     Dosage: 18.2 MG
     Route: 042
     Dates: start: 20201203, end: 20201203
  11. ENTOCORT [Concomitant]
     Active Substance: BUDESONIDE
     Dosage: 9MG FOR 1 MONTH, 6MG FOR 1MONTH AND 3 MG FOR THE LAST MONTH
     Route: 065
     Dates: start: 20200307
  12. INFLECTRA [Suspect]
     Active Substance: INFLIXIMAB-DYYB
     Dosage: 5 MG/KG, 0, 2, 6 WEEKS, THEN EVERY 8 WEEKS
     Route: 042
     Dates: start: 20200714
  13. CIPRALEX [Concomitant]
     Active Substance: ESCITALOPRAM OXALATE
     Dosage: UNK
     Route: 065
  14. HYDROCORTISONE. [Concomitant]
     Active Substance: HYDROCORTISONE
     Indication: PREMEDICATION
     Dosage: 100 UNK
     Route: 042
     Dates: start: 20201203, end: 20201203
  15. VISANNE [Concomitant]
     Active Substance: DIENOGEST
     Dosage: UNK
     Route: 065

REACTIONS (46)
  - Intentional product use issue [Unknown]
  - Chest discomfort [Recovered/Resolved]
  - Dizziness [Recovering/Resolving]
  - Nausea [Recovered/Resolved]
  - General physical health deterioration [Unknown]
  - Tachycardia [Unknown]
  - Abdominal pain upper [Not Recovered/Not Resolved]
  - Chills [Unknown]
  - Fatigue [Unknown]
  - Paraesthesia [Recovered/Resolved]
  - Tremor [Unknown]
  - Dyspnoea [Not Recovered/Not Resolved]
  - Off label use [Unknown]
  - Hypoaesthesia oral [Unknown]
  - Fibrin D dimer increased [Unknown]
  - Headache [Unknown]
  - Pharyngeal hypoaesthesia [Unknown]
  - Rash macular [Unknown]
  - Skin disorder [Recovering/Resolving]
  - Condition aggravated [Not Recovered/Not Resolved]
  - Impaired gastric emptying [Not Recovered/Not Resolved]
  - Infusion related reaction [Unknown]
  - Drug ineffective [Not Recovered/Not Resolved]
  - Blood test abnormal [Unknown]
  - Electrocardiogram abnormal [Recovered/Resolved]
  - Gastritis [Unknown]
  - Hypersensitivity [Not Recovered/Not Resolved]
  - Haemorrhoids [Unknown]
  - Paraesthesia oral [Recovered/Resolved]
  - Rash [Unknown]
  - Rash erythematous [Unknown]
  - Crohn^s disease [Unknown]
  - Hypotension [Unknown]
  - Dehydration [Unknown]
  - Chest pain [Recovered/Resolved]
  - Eye pain [Not Recovered/Not Resolved]
  - Insomnia [Unknown]
  - Pharyngeal paraesthesia [Recovered/Resolved]
  - Pruritus [Recovered/Resolved]
  - Vomiting [Recovered/Resolved]
  - Pharyngeal swelling [Not Recovered/Not Resolved]
  - Asthenia [Unknown]
  - Pallor [Unknown]
  - Throat tightness [Recovered/Resolved]
  - Pruritus [Not Recovered/Not Resolved]
  - Somnolence [Unknown]

NARRATIVE: CASE EVENT DATE: 20200520
